FAERS Safety Report 12766609 (Version 1)
Quarter: 2016Q3

REPORT INFORMATION
  Report Type: Report from Study
  Country: TR (occurrence: TR)
  Receive Date: 20160921
  Receipt Date: 20160921
  Transmission Date: 20161109
  Serious: Yes (Death, Life-Threatening, Hospitalization)
  Sender: FDA-Public Use
  Company Number: TR-CELGENEUS-TUR-2015012917

PATIENT
  Age: 66 Year
  Sex: Female
  Weight: 85 kg

DRUGS (3)
  1. KORDEXA [Suspect]
     Active Substance: DEXAMETHASONE
     Indication: PLASMA CELL MYELOMA
     Route: 065
     Dates: start: 20141209, end: 20150122
  2. ALBUMIN [Concomitant]
     Active Substance: ALBUMIN HUMAN
     Indication: HYPOALBUMINAEMIA
     Dosage: 4500 MILLIGRAM
     Route: 065
  3. REVLIMID [Suspect]
     Active Substance: LENALIDOMIDE
     Indication: PLASMA CELL MYELOMA
     Dosage: 25 MILLIGRAM
     Route: 048
     Dates: start: 20141209, end: 20150122

REACTIONS (7)
  - Thrombocytopenia [Recovered/Resolved]
  - Respiratory failure [Fatal]
  - Leukopenia [Recovered/Resolved]
  - Cardiac failure [Fatal]
  - Pneumonia [Not Recovered/Not Resolved]
  - Thrombocytopenia [Recovered/Resolved]
  - Thrombocytopenia [Recovered/Resolved]

NARRATIVE: CASE EVENT DATE: 20141229
